FAERS Safety Report 26207878 (Version 1)
Quarter: 2025Q4

REPORT INFORMATION
  Report Type: Spontaneous
  Country: US (occurrence: US)
  Receive Date: 20251229
  Receipt Date: 20251229
  Transmission Date: 20260118
  Serious: No
  Sender: MERCK SHARP & DOHME LLC
  Company Number: US-009507513-2358477

PATIENT
  Sex: Female
  Weight: 63.503 kg

DRUGS (20)
  1. WINREVAIR [Suspect]
     Active Substance: SOTATERCEPT-CSRK
     Dosage: DOSE DECREASE TO 0.3 MG/KG
  2. WINREVAIR [Suspect]
     Active Substance: SOTATERCEPT-CSRK
  3. WINREVAIR [Suspect]
     Active Substance: SOTATERCEPT-CSRK
  4. WINREVAIR [Suspect]
     Active Substance: SOTATERCEPT-CSRK
  5. TREPROSTINIL [Suspect]
     Active Substance: TREPROSTINIL
     Indication: Pulmonary arterial hypertension
     Dosage: DOSE: 45 NG/KG/MIN, STRENGTH: 2.5 MG/ML, FREQUENCY: CONTINUOUS
     Route: 042
     Dates: start: 2021
  6. FUROSEMIDE [Concomitant]
     Active Substance: FUROSEMIDE
  7. GAS-X [Concomitant]
     Active Substance: DIMETHICONE
  8. LOMOTIL [Concomitant]
     Active Substance: ATROPINE SULFATE\DIPHENOXYLATE HYDROCHLORIDE
  9. TUKYSA [Concomitant]
     Active Substance: TUCATINIB
  10. PROCHLORPERAZINE MALEATE [Concomitant]
     Active Substance: PROCHLORPERAZINE MALEATE
  11. MAGNESIUM [Concomitant]
     Active Substance: MAGNESIUM
  12. LOPERAMIDE [Concomitant]
     Active Substance: LOPERAMIDE
  13. HERCEPTIN [Concomitant]
     Active Substance: TRASTUZUMAB
  14. FERROUS SULFATE [Concomitant]
     Active Substance: FERROUS SULFATE
  15. POTASSIUM CHLORIDE [Concomitant]
     Active Substance: POTASSIUM CHLORIDE
  16. PROTONIX [Concomitant]
     Active Substance: PANTOPRAZOLE SODIUM
  17. KEPPRA [Concomitant]
     Active Substance: LEVETIRACETAM
  18. CAPECITABINE [Concomitant]
     Active Substance: CAPECITABINE
  19. CALCIUM\CHOLECALCIFEROL [Concomitant]
     Active Substance: CALCIUM\CHOLECALCIFEROL
  20. ELIQUIS [Concomitant]
     Active Substance: APIXABAN

REACTIONS (1)
  - Platelet count decreased [Unknown]
